FAERS Safety Report 6669016-9 (Version None)
Quarter: 2010Q2

REPORT INFORMATION
  Report Type: 
  Country: None (occurrence: None)
  Receive Date: 20100406
  Receipt Date: 20100331
  Transmission Date: 20101027
  Serious: Yes (Hospitalization, Other)
  Sender: FDA-Public Use
  Company Number: GXKR2010DE03706

PATIENT
  Age: 81 Year
  Sex: Female

DRUGS (3)
  1. VENLAFAXIN HEXAL (NGX) [Suspect]
     Indication: DEPRESSION
     Dosage: 37.5 MG, QD
     Route: 048
     Dates: start: 20091216, end: 20100101
  2. VENLAFAXIN HEXAL (NGX) [Suspect]
     Dosage: 75 MG, QD
     Route: 048
     Dates: start: 20100101
  3. METOPROLOL TARTRATE [Suspect]
     Route: 048

REACTIONS (4)
  - ASTHENIA [None]
  - DYSPNOEA [None]
  - PULMONARY FIBROSIS [None]
  - TACHYCARDIA [None]
